FAERS Safety Report 22190594 (Version 2)
Quarter: 2023Q2

REPORT INFORMATION
  Report Type: Spontaneous
  Country: JP (occurrence: JP)
  Receive Date: 20230410
  Receipt Date: 20230424
  Transmission Date: 20230722
  Serious: Yes (Other)
  Sender: FDA-Public Use
  Company Number: JP-ORGANON-O2304JPN000082J

PATIENT
  Age: 69 Year
  Sex: Female

DRUGS (6)
  1. DESLORATADINE [Suspect]
     Active Substance: DESLORATADINE
     Indication: Rhinitis allergic
     Dosage: 5 MILLIGRAM, QD
     Route: 048
     Dates: start: 20230308, end: 20230405
  2. DESLORATADINE [Suspect]
     Active Substance: DESLORATADINE
     Indication: Conjunctivitis
  3. AMLODIPINE BESYLATE [Concomitant]
     Active Substance: AMLODIPINE BESYLATE
     Dosage: 5 MILLIGRAM
     Route: 065
  4. TELMISARTAN [Concomitant]
     Active Substance: TELMISARTAN
     Dosage: UNK
     Route: 065
  5. PITAVASTATIN CALCIUM [Concomitant]
     Active Substance: PITAVASTATIN CALCIUM
     Dosage: 1 MILLIGRAM
     Route: 065
  6. ESOMEPRAZOLE MAGNESIUM [Concomitant]
     Active Substance: ESOMEPRAZOLE MAGNESIUM
     Dosage: 20 MILLIGRAM
     Route: 065

REACTIONS (3)
  - Mental impairment [Unknown]
  - Judgement impaired [Unknown]
  - Product use in unapproved indication [Unknown]

NARRATIVE: CASE EVENT DATE: 20230405
